FAERS Safety Report 21720791 (Version 1)
Quarter: 2022Q4

REPORT INFORMATION
  Report Type: Spontaneous
  Country: US (occurrence: US)
  Receive Date: 20221213
  Receipt Date: 20221213
  Transmission Date: 20230113
  Serious: Yes (Hospitalization, Other)
  Sender: FDA-Public Use
  Company Number: US-JNJFOC-20221211625

PATIENT
  Age: 53 Year
  Sex: Female
  Weight: 61.23 kg

DRUGS (8)
  1. REMICADE [Suspect]
     Active Substance: INFLIXIMAB
     Indication: Crohn^s disease
     Route: 041
     Dates: end: 202207
  2. FOLIC ACID [Concomitant]
     Active Substance: FOLIC ACID
     Indication: Crohn^s disease
  3. VITAMINS [Concomitant]
     Active Substance: VITAMINS
     Dosage: ONE A DAY WOMEN^S 50+
  4. PROBIOTICS NOS [Concomitant]
     Active Substance: PROBIOTICS NOS
     Indication: Crohn^s disease
     Dosage: 25 BILLION A DAY WHICH IS 2 PILLS
  5. ERGOCALCIFEROL [Concomitant]
     Active Substance: ERGOCALCIFEROL
     Indication: Crohn^s disease
  6. CALCIUM [Concomitant]
     Active Substance: CALCIUM
     Indication: Crohn^s disease
  7. SERTRALINE [Concomitant]
     Active Substance: SERTRALINE HYDROCHLORIDE
     Indication: Mood swings
  8. FAMOTIDINE [Concomitant]
     Active Substance: FAMOTIDINE
     Indication: Gastrooesophageal reflux disease

REACTIONS (4)
  - Colonic fistula [Recovered/Resolved]
  - Enterostomy [Unknown]
  - Postoperative wound infection [Unknown]
  - Crohn^s disease [Unknown]

NARRATIVE: CASE EVENT DATE: 20220101
